FAERS Safety Report 23367228 (Version 1)
Quarter: 2024Q1

REPORT INFORMATION
  Report Type: Spontaneous
  Country: KR (occurrence: KR)
  Receive Date: 20240104
  Receipt Date: 20240104
  Transmission Date: 20240410
  Serious: Yes (Other)
  Sender: FDA-Public Use
  Company Number: KR-PFIZER INC-202300456179

PATIENT
  Age: 42 Year
  Sex: Female

DRUGS (4)
  1. CYTOTEC [Suspect]
     Active Substance: MISOPROSTOL
     Indication: Abortion
     Dosage: 200 UG, 1X/DAY
     Route: 048
     Dates: start: 20210915, end: 20210915
  2. CEFACLOR [Suspect]
     Active Substance: CEFACLOR
     Indication: Abortion
     Dosage: 250 MG, 1X/DAY
     Route: 048
     Dates: start: 20210915, end: 20210915
  3. STREPTODORNASE\STREPTOKINASE [Suspect]
     Active Substance: STREPTODORNASE\STREPTOKINASE
     Indication: Abortion
     Dosage: 1 DF, 1X/DAY
     Route: 048
     Dates: start: 20210915, end: 20210915
  4. ITOPRIDE HYDROCHLORIDE [Suspect]
     Active Substance: ITOPRIDE HYDROCHLORIDE
     Indication: Abortion
     Dosage: 50 MG, 1X/DAY
     Route: 048
     Dates: start: 20210915, end: 20210915

REACTIONS (7)
  - Urticaria [Recovered/Resolved]
  - Vomiting [Recovered/Resolved]
  - Abdominal pain [Recovered/Resolved]
  - Dyspnoea [Recovered/Resolved]
  - Dizziness [Recovered/Resolved]
  - Diarrhoea [Recovered/Resolved]
  - Off label use [Unknown]

NARRATIVE: CASE EVENT DATE: 20210915
